FAERS Safety Report 8302019 (Version 4)
Quarter: 2012Q4

REPORT INFORMATION
  Report Type: 
  Country: NL (occurrence: NL)
  Receive Date: 20111220
  Receipt Date: 20120906
  Transmission Date: 20130627
  Serious: Yes (Other)
  Sender: FDA-Public Use
  Company Number: NL-ELI_LILLY_AND_COMPANY-NL201112002416

PATIENT
  Age: 61 None
  Sex: Female
  Weight: 90 kg

DRUGS (7)
  1. FORSTEO [Suspect]
     Indication: OSTEOPOROSIS
     Dosage: 20 ug, qd
     Route: 058
     Dates: start: 20110719
  2. OXAZEPAM [Concomitant]
     Indication: RELAXATION THERAPY
     Dosage: 10 mg, qd
     Route: 048
     Dates: start: 2003
  3. PARACETAMOL WITH CODEINE [Concomitant]
     Indication: PAIN
     Dosage: 6 DF, qd
     Route: 048
  4. SPIRIVA [Concomitant]
     Indication: CHRONIC OBSTRUCTIVE PULMONARY DISEASE
     Dosage: 1 DF, qd
     Route: 055
     Dates: start: 2005
  5. SERETIDE [Concomitant]
     Indication: CHRONIC OBSTRUCTIVE PULMONARY DISEASE
     Dosage: 4 DF, qd
     Route: 048
     Dates: start: 2005
  6. SALBUTAMOL [Concomitant]
     Indication: CHRONIC OBSTRUCTIVE PULMONARY DISEASE
     Dosage: 4 DF, qd
     Route: 048
     Dates: start: 2005
  7. AERIUS [Concomitant]
     Indication: PRURITUS
     Dosage: 1 DF, qd
     Route: 048

REACTIONS (5)
  - Pneumonitis [Unknown]
  - Benign breast neoplasm [Unknown]
  - Affect lability [Not Recovered/Not Resolved]
  - Fluid retention [Unknown]
  - Weight increased [Unknown]
